FAERS Safety Report 19616201 (Version 1)
Quarter: 2021Q3

REPORT INFORMATION
  Report Type: Spontaneous
  Country: US (occurrence: US)
  Receive Date: 20210727
  Receipt Date: 20210727
  Transmission Date: 20211014
  Serious: No
  Sender: FDA-Public Use
  Company Number: US-ABBVIE-21K-163-3948172-00

PATIENT
  Age: 64 Year
  Sex: Female

DRUGS (6)
  1. NP THYROID [Suspect]
     Active Substance: LEVOTHYROXINE\LIOTHYRONINE
     Route: 048
  2. ARMOUR THYROID [Concomitant]
     Active Substance: THYROID, PORCINE
     Indication: AUTOIMMUNE THYROIDITIS
  3. SYNTHROID [Suspect]
     Active Substance: LEVOTHYROXINE SODIUM
     Indication: PRODUCT USED FOR UNKNOWN INDICATION
     Dosage: SYNTHROID HAS CORN FILLERS
     Route: 048
  4. NP THYROID [Suspect]
     Active Substance: LEVOTHYROXINE\LIOTHYRONINE
     Indication: AUTOIMMUNE THYROIDITIS
     Dosage: TAKE ONE TABLET ONCE DAILY
     Route: 048
  5. NP THYROID [Suspect]
     Active Substance: LEVOTHYROXINE\LIOTHYRONINE
     Dosage: TAKE ONE TABLET ONCE DAILY
     Route: 048
  6. PROGESTERONE. [Concomitant]
     Active Substance: PROGESTERONE
     Indication: PRODUCT USED FOR UNKNOWN INDICATION

REACTIONS (12)
  - Blood thyroid stimulating hormone increased [Unknown]
  - Mental fatigue [Recovering/Resolving]
  - Arthralgia [Recovering/Resolving]
  - Thyroid hormones decreased [Recovered/Resolved]
  - Upper respiratory tract infection [Recovered/Resolved]
  - Asthenia [Recovering/Resolving]
  - Mood altered [Recovering/Resolving]
  - Stress [Recovering/Resolving]
  - Gluten sensitivity [Unknown]
  - Muscle fatigue [Recovering/Resolving]
  - Depression [Recovering/Resolving]
  - Feeling abnormal [Recovering/Resolving]

NARRATIVE: CASE EVENT DATE: 202003
